FAERS Safety Report 6431486-9 (Version None)
Quarter: 2009Q4

REPORT INFORMATION
  Report Type: 
  Country: None (occurrence: None)
  Receive Date: 20091106
  Receipt Date: 20091029
  Transmission Date: 20100525
  Serious: Yes (Life-Threatening)
  Sender: FDA-Public Use
  Company Number: US-BAXTER-2009BH016717

PATIENT
  Age: 61 Year
  Sex: Male

DRUGS (2)
  1. ADENOSINE [Suspect]
     Indication: SUPRAVENTRICULAR TACHYCARDIA
     Route: 042
  2. ADENOSINE [Suspect]
     Route: 042

REACTIONS (1)
  - CARDIO-RESPIRATORY ARREST [None]
